FAERS Safety Report 9100056 (Version 1)
Quarter: 2013Q1

REPORT INFORMATION
  Report Type: Report from Study
  Country: BR (occurrence: BR)
  Receive Date: 20130215
  Receipt Date: 20130215
  Transmission Date: 20140127
  Serious: Yes (Other)
  Sender: FDA-Public Use
  Company Number: BR-ABBOTT-13P-020-1049780-00

PATIENT
  Age: 48 None
  Sex: Male
  Weight: 100 kg

DRUGS (4)
  1. HUMIRA [Suspect]
     Indication: PSORIATIC ARTHROPATHY
     Route: 058
     Dates: start: 20090115, end: 20121224
  2. HUMIRA [Suspect]
     Route: 058
     Dates: start: 20130130
  3. ATENOLOL [Concomitant]
     Indication: HYPERTENSION
     Route: 048
     Dates: start: 2007
  4. ENALAPRIL [Concomitant]
     Indication: HYPERTENSION
     Route: 048
     Dates: start: 2007

REACTIONS (3)
  - Osteoporosis [Recovering/Resolving]
  - Tendonitis [Recovering/Resolving]
  - Skin depigmentation [Not Recovered/Not Resolved]
